FAERS Safety Report 9425351 (Version 1)
Quarter: 2013Q3

REPORT INFORMATION
  Report Type: Report from Study
  Country: US (occurrence: US)
  Receive Date: 20130729
  Receipt Date: 20130729
  Transmission Date: 20140515
  Serious: Yes (Other)
  Sender: FDA-Public Use
  Company Number: US-BAYER-2013-087412

PATIENT
  Sex: Male

DRUGS (6)
  1. ASPIRIN [Suspect]
     Indication: ANTIPLATELET THERAPY
     Dosage: FULL DOSE, PRIOR TO PIPELINE EMBOLIZATION DEVICE PROCEDURE
  2. ASPIRIN [Interacting]
     Indication: CAROTID ARTERY ANEURYSM
     Dosage: PRE-PROCEDURAL ANTIPLATELET THERAPY: DAILY DOSE 325 MG
     Route: 048
  3. ASPIRIN [Interacting]
     Indication: ANTIPLATELET THERAPY
     Dosage: POST-PROCEDURAL ANTIPLATELET THERAPY: DAILY DOSE 325 MG, RESTARTED ON PPD 3
     Route: 048
  4. PRASUGREL [Interacting]
     Indication: ANTIPLATELET THERAPY
     Dosage: PRE-PROCEDURAL ANTIPLATELET THERAPY: 60 MG, ONCE
     Route: 048
  5. PRASUGREL [Interacting]
     Indication: ANTIPLATELET THERAPY
     Dosage: POST-PROCEDURAL ANTIPLATELET THERAPY: DAILY DOSE 10 MG, RESTARTED ON PPD 3
     Route: 048
  6. CLOPIDOGREL [Suspect]
     Indication: CAROTID ARTERY ANEURYSM

REACTIONS (9)
  - Vessel perforation [None]
  - Haematoma [None]
  - Abdominal wall haematoma [None]
  - Haematoma [None]
  - Scrotal haematoma [None]
  - Haemodynamic instability [None]
  - Deep vein thrombosis [None]
  - Pulmonary embolism [None]
  - Labelled drug-drug interaction medication error [None]
